FAERS Safety Report 20063443 (Version 2)
Quarter: 2022Q1

REPORT INFORMATION
  Report Type: Report from Study
  Country: US (occurrence: US)
  Receive Date: 20211112
  Receipt Date: 20220208
  Transmission Date: 20220424
  Serious: No
  Sender: FDA-Public Use
  Company Number: US-PHARMACOVIGILANCE-US-KAD-21-00032

PATIENT
  Sex: Male

DRUGS (3)
  1. REZUROCK [Suspect]
     Active Substance: BELUMOSUDIL
     Indication: Graft versus host disease
     Dosage: 200 MG ONCE DAILY, ORALLY BEFORE NOON
     Route: 048
     Dates: start: 20211001
  2. JAKAFI [Suspect]
     Active Substance: RUXOLITINIB
     Indication: Graft versus host disease
     Dosage: LOW DOSES
  3. MOISTURISING [Concomitant]
     Indication: Pruritus
     Dosage: UNK

REACTIONS (3)
  - Pruritus [Unknown]
  - Drug ineffective [Unknown]
  - Nausea [Recovered/Resolved]
